FAERS Safety Report 4898953-0 (Version None)
Quarter: 2006Q1

REPORT INFORMATION
  Report Type: 
  Country: None (occurrence: None)
  Receive Date: 20060202
  Receipt Date: 20051003
  Transmission Date: 20060701
  Serious: Yes (Hospitalization, Other)
  Sender: FDA-Public Use
  Company Number: US-MERCK-0510USA02723

PATIENT
  Age: 64 Year
  Sex: Male

DRUGS (13)
  1. VIOXX [Suspect]
     Route: 048
  2. TOPROL-XL [Concomitant]
     Route: 065
  3. PLAVIX [Concomitant]
     Route: 065
  4. POTASSIUM (UNSPECIFIED) [Concomitant]
     Route: 065
  5. FUROSEMIDE [Concomitant]
     Route: 065
  6. MAVIK [Concomitant]
     Route: 065
  7. ASPIRIN [Concomitant]
     Route: 065
  8. ISORDIL [Concomitant]
     Route: 065
  9. DIOVAN HCT [Concomitant]
     Route: 065
  10. LASIX [Concomitant]
     Route: 065
  11. NITROGLYCERIN [Concomitant]
     Route: 065
  12. LANOXIN [Concomitant]
     Route: 065
  13. CALCIUM (UNSPECIFIED) [Concomitant]
     Route: 065

REACTIONS (18)
  - ACUTE MYOCARDIAL INFARCTION [None]
  - ANGINA PECTORIS [None]
  - ANXIETY [None]
  - CARDIAC DISORDER [None]
  - CARDIOVASCULAR DISORDER [None]
  - CORONARY ARTERY DISEASE [None]
  - CORONARY ARTERY STENOSIS [None]
  - DILATATION ATRIAL [None]
  - DRUG INEFFECTIVE [None]
  - DYSPNOEA [None]
  - ESSENTIAL HYPERTENSION [None]
  - HYPERCHOLESTEROLAEMIA [None]
  - HYPERTENSION [None]
  - MITRAL VALVE INCOMPETENCE [None]
  - OSTEOARTHRITIS [None]
  - PULMONARY EMBOLISM [None]
  - PYREXIA [None]
  - VENTRICULAR TACHYCARDIA [None]
